FAERS Safety Report 15894281 (Version 1)
Quarter: 2019Q1

REPORT INFORMATION
  Report Type: Report from Study
  Country: GR (occurrence: GR)
  Receive Date: 20190131
  Receipt Date: 20190131
  Transmission Date: 20190417
  Serious: Yes (Other)
  Sender: FDA-Public Use
  Company Number: GR-SAKK-2019SA025597AA

PATIENT
  Age: 78 Year
  Sex: Female

DRUGS (4)
  1. VOLTAREN [Concomitant]
     Active Substance: DICLOFENAC SODIUM
     Dosage: UNK
  2. INSULIN GLARGINE [Suspect]
     Active Substance: INSULIN GLARGINE
     Indication: DIABETES MELLITUS
     Dosage: UNK UNK, BID
     Route: 058
  3. DEPON [Concomitant]
     Active Substance: ACETAMINOPHEN
  4. LONARID [AMOBARBITAL;CAFFEINE;CODEINE PHOSPHATE;OCTIBENZONIUM BROMIDE; [Concomitant]
     Dosage: UNK

REACTIONS (9)
  - Rib fracture [Unknown]
  - Breast pain [Unknown]
  - Limb injury [Unknown]
  - Haemodialysis [Unknown]
  - Hypoglycaemia [Unknown]
  - Colon cancer [Unknown]
  - Fall [Unknown]
  - Inappropriate schedule of product administration [Unknown]
  - Blood glucose increased [Unknown]
